FAERS Safety Report 8921498 (Version 1)
Quarter: 2012Q4

REPORT INFORMATION
  Report Type: 
  Country: ES (occurrence: ES)
  Receive Date: 20121121
  Receipt Date: 20121121
  Transmission Date: 20130627
  Serious: Yes (Hospitalization)
  Sender: FDA-Public Use
  Company Number: ES-ABBOTT-12P-144-1009345-00

PATIENT
  Age: 44 Year
  Sex: Female

DRUGS (9)
  1. LOPINAVIR/RITONAVIR [Suspect]
     Indication: ANTIRETROVIRAL THERAPY
     Dosage: 400/100 mg
  2. LOPINAVIR/RITONAVIR [Interacting]
     Dosage: 300/75 mg
  3. CYCLOSPORINE [Interacting]
     Indication: IMMUNOSUPPRESSANT DRUG THERAPY
     Route: 048
  4. CYCLOSPORINE [Interacting]
     Route: 048
  5. CYCLOSPORINE [Interacting]
  6. FLUCONAZOLE [Interacting]
     Indication: VULVOVAGINAL CANDIDIASIS
  7. MYCOPHENOLATE [Concomitant]
     Indication: IMMUNOSUPPRESSANT DRUG THERAPY
     Route: 048
  8. RALTEGRAVIR [Concomitant]
     Indication: ANTIRETROVIRAL THERAPY
  9. LAMIVUDINA [Concomitant]
     Indication: ANTIRETROVIRAL THERAPY

REACTIONS (3)
  - Drug level increased [Recovered/Resolved]
  - Immunosuppressant drug level increased [Recovered/Resolved]
  - Drug interaction [Recovered/Resolved]
